FAERS Safety Report 6078665-0 (Version None)
Quarter: 2009Q1

REPORT INFORMATION
  Report Type: 
  Country: None (occurrence: None)
  Receive Date: 20090216
  Receipt Date: 20090211
  Transmission Date: 20090719
  Serious: Yes (Death, Hospitalization, Other)
  Sender: FDA-Public Use
  Company Number: PHHY2009BR04975

PATIENT
  Age: 58 Year
  Sex: Male

DRUGS (2)
  1. GLEEVEC [Suspect]
     Indication: CHRONIC MYELOID LEUKAEMIA
     Dosage: 400 MG/DAY
     Route: 048
  2. GLEEVEC [Suspect]
     Dosage: 600 MG/DAY
     Route: 048
     Dates: start: 20080801

REACTIONS (11)
  - ABDOMINAL PAIN [None]
  - ARTHRALGIA [None]
  - CONFUSIONAL STATE [None]
  - DEATH [None]
  - HEPATIC FAILURE [None]
  - HYPERBILIRUBINAEMIA [None]
  - JAUNDICE CHOLESTATIC [None]
  - OEDEMA [None]
  - RENAL FAILURE [None]
  - RESPIRATORY FAILURE [None]
  - TREATMENT FAILURE [None]
